FAERS Safety Report 5020936-0 (Version None)
Quarter: 2006Q2

REPORT INFORMATION
  Report Type: 
  Country: None (occurrence: None)
  Receive Date: 20060602
  Receipt Date: 20060525
  Transmission Date: 20061013
  Serious: Yes (Other)
  Sender: FDA-Public Use
  Company Number: 221679

PATIENT
  Age: 59 Year
  Sex: Male

DRUGS (4)
  1. XOLAIR [Suspect]
     Dosage: 300 NK, Q2W,
  2. ADVAIR                 (FLUTICASONE PROPRIONATE, SALEMTEROL XINAFOATE) [Concomitant]
  3. UNIPRIL (RAMIPRIL) [Concomitant]
  4. FISH OIL (FISH OIL) [Concomitant]

REACTIONS (3)
  - AUTOIMMUNE DISORDER [None]
  - HYPOAESTHESIA [None]
  - JOINT SWELLING [None]
